FAERS Safety Report 13039497 (Version 1)
Quarter: 2016Q4

REPORT INFORMATION
  Report Type: Spontaneous
  Country: US (occurrence: US)
  Receive Date: 20161219
  Receipt Date: 20161219
  Transmission Date: 20170207
  Serious: No
  Sender: FDA-Public Use
  Company Number: None

PATIENT
  Age: 52 Year
  Sex: Male

DRUGS (1)
  1. BUPROPION XL [Suspect]
     Active Substance: BUPROPION
     Route: 048
     Dates: start: 20150801, end: 20161105

REACTIONS (2)
  - Product substitution issue [None]
  - Headache [None]

NARRATIVE: CASE EVENT DATE: 20161217
